FAERS Safety Report 10285746 (Version 4)
Quarter: 2024Q3

REPORT INFORMATION
  Report Type: Report from Study
  Country: US (occurrence: US)
  Receive Date: 20140709
  Receipt Date: 20240916
  Transmission Date: 20241017
  Serious: Yes (Hospitalization, Other)
  Sender: ROCHE
  Company Number: US-ROCHE-1431150

PATIENT
  Age: 4 Year
  Sex: Male
  Weight: 67.2 kg

DRUGS (13)
  1. NUTROPIN AQ [Suspect]
     Active Substance: SOMATROPIN
     Indication: Prader-Willi syndrome
     Route: 058
  2. NUTROPIN AQ [Suspect]
     Active Substance: SOMATROPIN
     Indication: Growth hormone deficiency
     Route: 058
  3. NUTROPIN AQ [Suspect]
     Active Substance: SOMATROPIN
     Indication: Short stature
  4. METHYLPHENIDATE [Concomitant]
     Active Substance: METHYLPHENIDATE
     Route: 048
  5. VITAMIN D3 [Concomitant]
     Active Substance: CHOLECALCIFEROL
     Dosage: 1000 UNITS
     Route: 048
  6. QVAR [Concomitant]
     Active Substance: BECLOMETHASONE DIPROPIONATE
     Dosage: 40 MCG/ACT AEROSOL, 2 PUFFS BY INHALATION DAILY
     Route: 055
  7. VENTOLIN HFA [Concomitant]
     Active Substance: ALBUTEROL SULFATE
     Dosage: 108(90 BASE) MCG ACTUATION, 2-4 PUFFS BY INHALATION EVERY FOUR HOURS AS NEEDED
     Route: 055
  8. TYLENOL [Concomitant]
     Active Substance: ACETAMINOPHEN
     Dosage: 160 MG/5ML ORAL SUSPENSION AS NEEDED
     Route: 048
  9. ADVIL [Concomitant]
     Active Substance: IBUPROFEN\IBUPROFEN SODIUM
     Dosage: 100 MG/5ML ORAL SUSPENSION AS NEEDED
     Route: 048
  10. CATAPRES [Concomitant]
     Active Substance: CLONIDINE HYDROCHLORIDE
     Dosage: TAKE 0.05MG AT BEDTIME AND 0.025 MG DAILY
     Route: 048
  11. DEXMETHYLPHENIDATE [Concomitant]
     Active Substance: DEXMETHYLPHENIDATE
     Route: 048
  12. FOCALIN [Concomitant]
     Active Substance: DEXMETHYLPHENIDATE HYDROCHLORIDE
  13. ADDERALL XR [Concomitant]
     Active Substance: AMPHETAMINE ASPARTATE\AMPHETAMINE SULFATE\DEXTROAMPHETAMINE SACCHARATE\DEXTROAMPHETAMINE SULFATE

REACTIONS (16)
  - Abnormal weight gain [Unknown]
  - Insulin-like growth factor increased [Unknown]
  - Insulin-like growth factor increased [Unknown]
  - Tonsillectomy [Unknown]
  - Adenoidectomy [Unknown]
  - Obstructive sleep apnoea syndrome [Unknown]
  - Dermatillomania [Unknown]
  - Defiant behaviour [Unknown]
  - Fat tissue increased [Unknown]
  - Neoplasm [Unknown]
  - Intentional product use issue [Unknown]
  - Off label use [Unknown]
  - Respiratory distress [Unknown]
  - Apnoea [Unknown]
  - Haemoglobin increased [Unknown]
  - Haematocrit increased [Unknown]

NARRATIVE: CASE EVENT DATE: 20131201
